FAERS Safety Report 13818862 (Version 2)
Quarter: 2018Q1

REPORT INFORMATION
  Report Type: Report from Study
  Country: US (occurrence: US)
  Receive Date: 20170731
  Receipt Date: 20180201
  Transmission Date: 20180508
  Serious: No
  Sender: FDA-Public Use
  Company Number: US-EXELIXIS-CABO-17009210

PATIENT
  Sex: Male

DRUGS (6)
  1. TRADJENTA [Concomitant]
     Active Substance: LINAGLIPTIN
  2. CABOMETYX [Suspect]
     Active Substance: CABOZANTINIB S-MALATE
     Indication: NEOPLASM MALIGNANT
     Dosage: 60 MG, QD
     Route: 048
     Dates: start: 20170404
  3. DIOVAN [Concomitant]
     Active Substance: VALSARTAN
  4. TRAMADOL. [Concomitant]
     Active Substance: TRAMADOL
  5. ALLOPURINOL. [Concomitant]
     Active Substance: ALLOPURINOL
  6. LOVASTATIN. [Concomitant]
     Active Substance: LOVASTATIN

REACTIONS (3)
  - Dysgeusia [Unknown]
  - Skin depigmentation [Unknown]
  - Weight decreased [Unknown]
